FAERS Safety Report 7159024-6 (Version None)
Quarter: 2010Q4

REPORT INFORMATION
  Report Type: 
  Country: None (occurrence: None)
  Receive Date: 20101130
  Receipt Date: 20101108
  Transmission Date: 20110411
  Serious: Yes (Hospitalization)
  Sender: FDA-Public Use
  Company Number: 2010JP005734

PATIENT
  Age: 32 Year
  Sex: Female
  Weight: 53 kg

DRUGS (4)
  1. PROGRAF [Suspect]
     Indication: RENAL TRANSPLANT
     Dosage: 1 MG, BID, ORAL
     Route: 048
  2. PREDONINE (PREDNISOLONE) [Concomitant]
  3. RITODRINE HYDROCHLORIDE [Concomitant]
  4. UNASYN [Concomitant]

REACTIONS (6)
  - DRUG EXPOSURE DURING PREGNANCY [None]
  - GESTATIONAL HYPERTENSION [None]
  - PREGNANCY [None]
  - PREMATURE LABOUR [None]
  - RENAL IMPAIRMENT [None]
  - UPPER RESPIRATORY TRACT INFLAMMATION [None]
